FAERS Safety Report 15011288 (Version 13)
Quarter: 2019Q1

REPORT INFORMATION
  Report Type: Spontaneous
  Country: FR (occurrence: FR)
  Receive Date: 20180614
  Receipt Date: 20190128
  Transmission Date: 20190417
  Serious: Yes (Hospitalization, Other)
  Sender: FDA-Public Use
  Company Number: FR-PFIZER INC-2018238740

PATIENT
  Age: 67 Year
  Sex: Female

DRUGS (4)
  1. ETOPOSIDE. [Suspect]
     Active Substance: ETOPOSIDE
     Indication: NON-HODGKIN^S LYMPHOMA STAGE IV
     Dosage: 200 MG/M2, CYCLIC (ON D6)
  2. ARACYTINE [Suspect]
     Active Substance: CYTARABINE
     Indication: NON-HODGKIN^S LYMPHOMA STAGE IV
     Dosage: 1000 MG/M2 (1 G/M2), CYCLIC (EVERY 12 HOURS ON D6 - D3)
  3. BENDAMUSTINE [Suspect]
     Active Substance: BENDAMUSTINE
     Indication: NON-HODGKIN^S LYMPHOMA STAGE IV
     Dosage: 200 MG/M2, CYCLIC (ON D7 AND D6)
     Route: 042
  4. MELPHALAN. [Suspect]
     Active Substance: MELPHALAN
     Indication: NON-HODGKIN^S LYMPHOMA STAGE IV
     Dosage: 140 MG/M2, CYCLIC (ON D2)

REACTIONS (2)
  - Venoocclusive liver disease [Unknown]
  - Product use in unapproved indication [Unknown]
